FAERS Safety Report 7107536-3 (Version None)
Quarter: 2010Q4

REPORT INFORMATION
  Report Type: 
  Country: None (occurrence: None)
  Receive Date: 20101117
  Receipt Date: 20101109
  Transmission Date: 20110411
  Serious: No
  Sender: FDA-Public Use
  Company Number: US-B.I. PHARMACEUTICALS,INC./RIDGEFIELD-2010-BP-12567BP

PATIENT
  Sex: Female

DRUGS (7)
  1. SPIRIVA [Suspect]
     Indication: CHRONIC OBSTRUCTIVE PULMONARY DISEASE
     Dosage: 18 MCG
     Route: 055
     Dates: start: 20100801
  2. NEURONTIN [Concomitant]
     Indication: FIBROMYALGIA
     Route: 048
     Dates: start: 20000101
  3. AMITRIPTYLINE HCL [Concomitant]
     Indication: FIBROMYALGIA
     Dosage: 150 MG
     Route: 048
     Dates: start: 20000101
  4. SAVELLA [Concomitant]
     Indication: FIBROMYALGIA
     Dosage: 75 MG
     Route: 048
     Dates: start: 20100801
  5. FIORICET [Concomitant]
     Indication: MIGRAINE
     Route: 048
     Dates: start: 19700101
  6. FIORICET [Concomitant]
     Indication: INTERVERTEBRAL DISC DEGENERATION
  7. KLONOPIN [Concomitant]
     Indication: ANXIETY
     Route: 048
     Dates: start: 20070101

REACTIONS (5)
  - EYE HAEMORRHAGE [None]
  - INTRAOCULAR PRESSURE INCREASED [None]
  - LACRIMATION INCREASED [None]
  - VISION BLURRED [None]
  - VISUAL IMPAIRMENT [None]
